FAERS Safety Report 6381548-X (Version None)
Quarter: 2009Q3

REPORT INFORMATION
  Report Type: 
  Country: None (occurrence: None)
  Receive Date: 20090925
  Receipt Date: 20090914
  Transmission Date: 20100115
  Serious: Yes (Hospitalization)
  Sender: FDA-Public Use
  Company Number: WAES 0908USA00492

PATIENT
  Age: 78 Year
  Sex: Female

DRUGS (14)
  1. FOSAMAX [Suspect]
     Indication: OSTEOPOROSIS
     Dosage: 35 MG/WKY PO
     Route: 048
     Dates: start: 20090316
  2. CALCIUM CARBONATE [Suspect]
     Indication: OSTEOPOROSIS
     Dosage: 2 TAB/DAILY PO
     Route: 048
     Dates: start: 20090217
  3. ASPIRIN [Concomitant]
  4. BRONUCK [Concomitant]
  5. HOKUNALIN [Concomitant]
  6. KETAS [Concomitant]
  7. LOXONIN [Concomitant]
  8. MERISLON [Concomitant]
  9. NORVASC [Concomitant]
  10. OPALMON [Concomitant]
  11. PEPCID [Concomitant]
  12. PURSENNID [Concomitant]
  13. SANTESON OPTHALMIC SOLUTION [Concomitant]
  14. VEGAMOX [Concomitant]

REACTIONS (1)
  - SPONDYLOLISTHESIS [None]
